FAERS Safety Report 5127890-1 (Version None)
Quarter: 2006Q4

REPORT INFORMATION
  Report Type: 
  Country: None (occurrence: None)
  Receive Date: 20061016
  Receipt Date: 20060306
  Transmission Date: 20070319
  Serious: Yes (Other)
  Sender: FDA-Public Use
  Company Number: ES-AMGEN-UK171540

PATIENT
  Sex: Female

DRUGS (1)
  1. ARANESP [Suspect]
     Indication: RENAL FAILURE CHRONIC
     Route: 065

REACTIONS (6)
  - ABORTION INDUCED [None]
  - ANTI-ERYTHROPOIETIN ANTIBODY [None]
  - ANTIBODY TEST POSITIVE [None]
  - HAEMOGLOBIN DECREASED [None]
  - PREGNANCY [None]
  - RENAL IMPAIRMENT [None]
